FAERS Safety Report 24855662 (Version 1)
Quarter: 2025Q1

REPORT INFORMATION
  Report Type: Spontaneous
  Country: DE (occurrence: DE)
  Receive Date: 20250117
  Receipt Date: 20250117
  Transmission Date: 20250409
  Serious: Yes (Other)
  Sender: RANBAXY
  Company Number: DE-SUN PHARMACEUTICAL INDUSTRIES LTD-2025RR-488822

PATIENT
  Age: 79 Year
  Sex: Male
  Weight: 68 kg

DRUGS (7)
  1. TAMSULOSIN [Suspect]
     Active Substance: TAMSULOSIN
     Indication: Urinary retention
     Dosage: 1 DOSAGE FORM, QOD
     Route: 065
  2. TAFLUPROST\TIMOLOL [Suspect]
     Active Substance: TAFLUPROST\TIMOLOL
     Indication: Intraocular pressure increased
     Dosage: 2 GTT DROPS, DAILY, 1 TROPFEN PRO AUGE AM TAG
     Route: 047
     Dates: start: 2023
  3. LATANOPROST [Concomitant]
     Active Substance: LATANOPROST
     Indication: Ocular hypertension
     Dosage: 1 DOSAGE FORM, DAILY
     Route: 065
     Dates: start: 2020
  4. LATANOPROST [Concomitant]
     Active Substance: LATANOPROST
     Indication: Cataract operation
  5. LATANOPROST\TIMOLOL MALEATE [Concomitant]
     Active Substance: LATANOPROST\TIMOLOL MALEATE
     Indication: Ocular hypertension
     Dosage: 1 DOSAGE FORM, DAILY
     Route: 065
     Dates: start: 2021, end: 2023
  6. LATANOPROST\TIMOLOL MALEATE [Concomitant]
     Active Substance: LATANOPROST\TIMOLOL MALEATE
     Indication: Cataract operation
  7. ENALAPRIL [Concomitant]
     Active Substance: ENALAPRIL
     Indication: Product used for unknown indication
     Route: 065

REACTIONS (5)
  - Tendon rupture [Recovered/Resolved with Sequelae]
  - Headache [Recovering/Resolving]
  - Dizziness [Unknown]
  - Fall [Recovered/Resolved with Sequelae]
  - Gait disturbance [Unknown]

NARRATIVE: CASE EVENT DATE: 20230101
